FAERS Safety Report 7197966-6 (Version None)
Quarter: 2010Q4

REPORT INFORMATION
  Report Type: 
  Country: None (occurrence: None)
  Receive Date: 20101203
  Receipt Date: 20101130
  Transmission Date: 20110411
  Serious: Yes (Hospitalization, Other)
  Sender: FDA-Public Use
  Company Number: 2010SP014796

PATIENT
  Age: 36 Year
  Sex: Female
  Weight: 154.223 kg

DRUGS (4)
  1. NUVARING [Suspect]
     Dosage: QM; VAG
     Route: 067
     Dates: start: 20050801, end: 20061001
  2. NUVARING [Suspect]
     Dosage: QM; VAG
     Route: 067
     Dates: start: 20071101, end: 20080303
  3. ALEVE [Concomitant]
  4. TYLENOL-500 [Concomitant]

REACTIONS (4)
  - ABORTION SPONTANEOUS [None]
  - DEEP VEIN THROMBOSIS [None]
  - PREGNANCY WITH CONTRACEPTIVE DEVICE [None]
  - PULMONARY EMBOLISM [None]
